FAERS Safety Report 9291370 (Version 1)
Quarter: 2013Q2

REPORT INFORMATION
  Report Type: Other
  Country: US (occurrence: US)
  Receive Date: 20130515
  Receipt Date: 20130515
  Transmission Date: 20140414
  Serious: Yes (Death)
  Sender: FDA-Public Use
  Company Number: US-SHIRE-ALL1-2013-03147

PATIENT
  Age: 58 Year
  Sex: Male

DRUGS (1)
  1. FOSRENOL [Suspect]
     Indication: RENAL FAILURE CHRONIC
     Dosage: 1000 MG, UNKNOWN (8 TABLETS PER DAY)
     Route: 048
     Dates: start: 201203

REACTIONS (2)
  - Death [Fatal]
  - Overdose [Not Recovered/Not Resolved]
